FAERS Safety Report 7971006-0 (Version None)
Quarter: 2011Q4

REPORT INFORMATION
  Report Type: 
  Country: None (occurrence: None)
  Receive Date: 20111122
  Receipt Date: 20110826
  Transmission Date: 20120403
  Serious: No
  Sender: FDA-Public Use
  Company Number: PHHY2011US69607

PATIENT
  Age: 47 Year
  Sex: Male

DRUGS (2)
  1. FLOMAX ^BOEHRINGER INGELHAIM^ (TAMSULOSIN HYDROCHLORIDE) [Concomitant]
  2. GILENYA [Suspect]
     Indication: MULTIPLE SCLEROSIS
     Dosage: 0.5 MG, DAILY, ORAL
     Route: 048
     Dates: start: 20110718

REACTIONS (2)
  - FATIGUE [None]
  - SOMNOLENCE [None]
